FAERS Safety Report 15163640 (Version 1)
Quarter: 2018Q3

REPORT INFORMATION
  Report Type: Spontaneous
  Country: GB (occurrence: GB)
  Receive Date: 20180719
  Receipt Date: 20180719
  Transmission Date: 20181010
  Serious: Yes (Other)
  Sender: FDA-Public Use
  Company Number: GB-TEVA-2018-GB-928711

PATIENT
  Age: 62 Year
  Sex: Female
  Weight: 97.06 kg

DRUGS (2)
  1. TRIMETHOPRIM. [Suspect]
     Active Substance: TRIMETHOPRIM
     Indication: URINARY TRACT INFECTION
     Route: 048
     Dates: start: 20180612, end: 20180615
  2. FLUOXETINE [Concomitant]
     Active Substance: FLUOXETINE HYDROCHLORIDE
     Route: 065

REACTIONS (2)
  - Nausea [Recovering/Resolving]
  - Tongue discomfort [Recovering/Resolving]

NARRATIVE: CASE EVENT DATE: 20180613
